FAERS Safety Report 23060686 (Version 7)
Quarter: 2025Q1

REPORT INFORMATION
  Report Type: Spontaneous
  Country: CA (occurrence: CA)
  Receive Date: 20231012
  Receipt Date: 20250221
  Transmission Date: 20250409
  Serious: Yes (Other)
  Sender: PFIZER
  Company Number: CA-PFIZER INC-202300269112

PATIENT
  Age: 48 Year
  Sex: Male

DRUGS (10)
  1. RUXIENCE [Suspect]
     Active Substance: RITUXIMAB-PVVR
     Indication: Myositis
     Route: 042
     Dates: start: 20230920
  2. RUXIENCE [Suspect]
     Active Substance: RITUXIMAB-PVVR
     Indication: Dermatomyositis
     Route: 042
     Dates: start: 20231005
  3. RUXIENCE [Suspect]
     Active Substance: RITUXIMAB-PVVR
     Route: 042
  4. RUXIENCE [Suspect]
     Active Substance: RITUXIMAB-PVVR
     Route: 042
     Dates: start: 20240513
  5. ALLOPURINOL [Concomitant]
     Active Substance: ALLOPURINOL
  6. FOLIC ACID [Concomitant]
     Active Substance: FOLIC ACID
  7. GLICLAZIDE [Concomitant]
     Active Substance: GLICLAZIDE
  8. METHOTREXATE [Concomitant]
     Active Substance: METHOTREXATE
     Indication: Dermatomyositis
  9. PERINDOPRIL [Concomitant]
     Active Substance: PERINDOPRIL
  10. PREDNISONE [Concomitant]
     Active Substance: PREDNISONE
     Indication: Dermatomyositis

REACTIONS (6)
  - Wisdom teeth removal [Unknown]
  - Infusion related reaction [Unknown]
  - Rhinorrhoea [Recovered/Resolved]
  - Throat irritation [Recovered/Resolved]
  - Blood pressure increased [Recovered/Resolved]
  - Off label use [Unknown]

NARRATIVE: CASE EVENT DATE: 20230920
